FAERS Safety Report 23047531 (Version 1)
Quarter: 2023Q4

REPORT INFORMATION
  Report Type: Spontaneous
  Country: JP (occurrence: JP)
  Receive Date: 20231010
  Receipt Date: 20231010
  Transmission Date: 20240110
  Serious: Yes (Other)
  Sender: FDA-Public Use
  Company Number: JP-DSJP-DSJ-2023-127914

PATIENT

DRUGS (6)
  1. DENOSUMAB [Suspect]
     Active Substance: DENOSUMAB
     Indication: Product used for unknown indication
     Dosage: UNK, 7 TIMES
     Route: 065
     Dates: end: 20221012
  2. DENOSUMAB [Suspect]
     Active Substance: DENOSUMAB
     Dosage: 60 MILLIGRAM, Q6MO
     Route: 065
     Dates: end: 20230529
  3. CALCIUM CARBONATE\CHOLECALCIFEROL\MAGNESIUM CARBONATE [Suspect]
     Active Substance: CALCIUM CARBONATE\CHOLECALCIFEROL\MAGNESIUM CARBONATE
     Indication: Product used for unknown indication
     Dosage: UNK
     Route: 048
     Dates: start: 2023
  4. CALCIUM ASPARTATE [Suspect]
     Active Substance: CALCIUM ASPARTATE
     Indication: Product used for unknown indication
     Dosage: UNK
     Route: 048
     Dates: end: 2023
  5. ALFAROL [Concomitant]
     Active Substance: ALFACALCIDOL
     Dosage: UNK
     Route: 048
     Dates: end: 2023
  6. ELDECALCITOL [Concomitant]
     Active Substance: ELDECALCITOL
     Dosage: UNK
     Route: 048

REACTIONS (10)
  - Facial paralysis [Unknown]
  - Thirst [Unknown]
  - Pruritus [Not Recovered/Not Resolved]
  - Tooth extraction [Not Recovered/Not Resolved]
  - Dental caries [Unknown]
  - Cheilitis [Unknown]
  - Skin irritation [Unknown]
  - Lymphocyte count decreased [Unknown]
  - Oxygen saturation decreased [Unknown]
  - Malaise [Unknown]

NARRATIVE: CASE EVENT DATE: 20230101
